FAERS Safety Report 18002498 (Version 2)
Quarter: 2020Q3

REPORT INFORMATION
  Report Type: Report from Study
  Country: DE (occurrence: DE)
  Receive Date: 20200710
  Receipt Date: 20200728
  Transmission Date: 20201103
  Serious: Yes (Hospitalization, Other)
  Sender: FDA-Public Use
  Company Number: DE-EMD SERONO-9172363

PATIENT
  Age: 54 Year
  Sex: Female

DRUGS (2)
  1. REBIF [Suspect]
     Active Substance: INTERFERON BETA-1A
     Indication: MULTIPLE SCLEROSIS
     Route: 058
     Dates: start: 200406
  2. TASIGNA [Concomitant]
     Active Substance: NILOTINIB
     Indication: PRODUCT USED FOR UNKNOWN INDICATION
     Dates: start: 200811

REACTIONS (8)
  - Injection site pain [Unknown]
  - Gastrointestinal stromal tumour [Unknown]
  - Paraesthesia [Not Recovered/Not Resolved]
  - Hepatic enzyme increased [Unknown]
  - Injection site erythema [Unknown]
  - Gait disturbance [Not Recovered/Not Resolved]
  - Metastases to liver [Unknown]
  - Pyrexia [Not Recovered/Not Resolved]

NARRATIVE: CASE EVENT DATE: 2006
